FAERS Safety Report 23692050 (Version 1)
Quarter: 2024Q2

REPORT INFORMATION
  Report Type: Spontaneous
  Country: CN (occurrence: CN)
  Receive Date: 20240401
  Receipt Date: 20240401
  Transmission Date: 20240716
  Serious: Yes (Hospitalization)
  Sender: FDA-Public Use
  Company Number: CN-002147023-NVSC2024CN068412

PATIENT
  Age: 40 Year
  Sex: Male
  Weight: 50 kg

DRUGS (3)
  1. CARBAMAZEPINE [Suspect]
     Active Substance: CARBAMAZEPINE
     Indication: Epilepsy
     Dosage: 0.2 G, BID
     Route: 048
     Dates: start: 20240312, end: 20240325
  2. VALPROATE SODIUM [Concomitant]
     Active Substance: VALPROATE SODIUM
     Indication: Epilepsy
     Dosage: 0.5 G, BID (SUSTAINED RELEASE TABLETS )
     Route: 048
     Dates: start: 20240312, end: 20240325
  3. TOPIRAMATE [Concomitant]
     Active Substance: TOPIRAMATE
     Indication: Epilepsy
     Dosage: 100 MG, TID
     Route: 065

REACTIONS (22)
  - Hepatic function abnormal [Not Recovered/Not Resolved]
  - Epilepsy [Recovering/Resolving]
  - Speech disorder [Unknown]
  - Chronic disease [Unknown]
  - Anxiety [Unknown]
  - Cognitive disorder [Unknown]
  - Motor dysfunction [Unknown]
  - Transferrin increased [Unknown]
  - Basophil percentage increased [Unknown]
  - Basophil count increased [Unknown]
  - Monocyte count increased [Unknown]
  - Blood fibrinogen decreased [Unknown]
  - Thrombin time prolonged [Unknown]
  - Blood phosphorus increased [Unknown]
  - Adenosine deaminase increased [Unknown]
  - Low density lipoprotein decreased [Unknown]
  - Thyroxine free decreased [Unknown]
  - Hepatitis B antibody abnormal [Unknown]
  - Hepatitis B [Unknown]
  - Blood pressure decreased [Unknown]
  - Hepatitis B surface antibody positive [Unknown]
  - Glutamate dehydrogenase increased [Unknown]

NARRATIVE: CASE EVENT DATE: 20240312
